FAERS Safety Report 5148432-0 (Version None)
Quarter: 2006Q4

REPORT INFORMATION
  Report Type: 
  Country: None (occurrence: None)
  Receive Date: 20061106
  Receipt Date: 20061025
  Transmission Date: 20070319
  Serious: Yes (Disabling)
  Sender: FDA-Public Use
  Company Number: 2006-270

PATIENT
  Age: 44 Year
  Sex: Male
  Weight: 60.8 kg

DRUGS (3)
  1. CITALOPRAM HYDROBROMIDE [Suspect]
     Indication: DEPRESSION
     Dosage: 20MG PER DAY
     Dates: start: 20060919, end: 20061006
  2. MIRTAZAPINE [Concomitant]
  3. ZOPICLONE [Concomitant]

REACTIONS (4)
  - ABNORMAL BEHAVIOUR [None]
  - AMNESIA [None]
  - DISTURBANCE IN ATTENTION [None]
  - SHOPLIFTING [None]
